FAERS Safety Report 5136527-7 (Version None)
Quarter: 2006Q4

REPORT INFORMATION
  Report Type: 
  Country: None (occurrence: None)
  Receive Date: 20061027
  Receipt Date: 20061023
  Transmission Date: 20070319
  Serious: Yes (Other)
  Sender: FDA-Public Use
  Company Number: BE-BOEHRINGER INGELHEIM PHARMACEUTICALS, INC.-2006-DE-05593GD

PATIENT
  Sex: Female

DRUGS (3)
  1. CLONIDINE [Suspect]
     Indication: EPIDURAL ANAESTHESIA
     Route: 008
  2. ROPIVACAINE [Suspect]
     Indication: EPIDURAL ANAESTHESIA
     Dosage: 9 ML 0.2%
     Route: 008
  3. ROPIVACAINE [Suspect]
     Dosage: 0.2%
     Route: 008

REACTIONS (1)
  - HYPOTENSION [None]
